FAERS Safety Report 20867895 (Version 1)
Quarter: 2022Q2

REPORT INFORMATION
  Report Type: Spontaneous
  Country: KR (occurrence: KR)
  Receive Date: 20220524
  Receipt Date: 20220524
  Transmission Date: 20220721
  Serious: Yes (Death, Hospitalization)
  Sender: FDA-Public Use
  Company Number: KR-ELI_LILLY_AND_COMPANY-KR202205008800

PATIENT
  Sex: Female

DRUGS (8)
  1. ALIMTA [Suspect]
     Active Substance: PEMETREXED DISODIUM
     Indication: Bronchioloalveolar carcinoma
     Dosage: 500 MG, UNKNOWN
     Route: 065
     Dates: start: 20200213
  2. HEPARIN SODIUM [Concomitant]
     Active Substance: HEPARIN SODIUM
     Indication: Product used for unknown indication
     Dosage: UNK
     Dates: start: 20200213
  3. HEPARIN SODIUM [Concomitant]
     Active Substance: HEPARIN SODIUM
     Dosage: UNK
     Dates: start: 20200302, end: 20200311
  4. SODIUM CHLORIDE [Concomitant]
     Active Substance: SODIUM CHLORIDE
     Indication: Product used for unknown indication
     Dosage: UNK
     Dates: start: 20200213
  5. PROPACETAMOL [Concomitant]
     Active Substance: PROPACETAMOL
     Indication: Product used for unknown indication
     Dosage: UNK
     Dates: start: 20200213, end: 20200214
  6. LIDOCAINE HYDROCHLORIDE MONOHYDRATE [Concomitant]
     Active Substance: LIDOCAINE HYDROCHLORIDE
     Indication: Product used for unknown indication
     Dosage: UNK
     Dates: start: 20200212, end: 20200213
  7. CARBOPLATIN [Concomitant]
     Active Substance: CARBOPLATIN
     Indication: Lung neoplasm malignant
     Dosage: UNK
     Dates: start: 20200213
  8. PALONOSETRON [Concomitant]
     Active Substance: PALONOSETRON
     Indication: Product used for unknown indication
     Dosage: UNK
     Dates: start: 20200309

REACTIONS (6)
  - Breast cancer [Fatal]
  - Bronchial obstruction [Fatal]
  - Respiratory failure [Fatal]
  - Malignant neoplasm progression [Fatal]
  - Pneumonia [Fatal]
  - Inappropriate schedule of product administration [Unknown]

NARRATIVE: CASE EVENT DATE: 20200309
